FAERS Safety Report 7049249-2 (Version None)
Quarter: 2010Q4

REPORT INFORMATION
  Report Type: 
  Country: None (occurrence: None)
  Receive Date: 20101018
  Receipt Date: 20101005
  Transmission Date: 20110411
  Serious: Yes (Other)
  Sender: FDA-Public Use
  Company Number: US-ROCHE-717486

PATIENT
  Sex: Male

DRUGS (1)
  1. ACCUTANE [Suspect]
     Indication: ACNE
     Route: 065
     Dates: start: 19991101, end: 20000201

REACTIONS (4)
  - ARTHRALGIA [None]
  - CHAPPED LIPS [None]
  - INFLAMMATORY BOWEL DISEASE [None]
  - PROCTITIS [None]
